FAERS Safety Report 10528750 (Version 1)
Quarter: 2014Q4

REPORT INFORMATION
  Report Type: Spontaneous
  Country: US (occurrence: None)
  Receive Date: 20141017
  Receipt Date: 20141017
  Transmission Date: 20150528
  Serious: No
  Sender: FDA-Public Use
  Company Number: None

PATIENT
  Age: 49 Year
  Sex: Female
  Weight: 102.51 kg

DRUGS (1)
  1. GENERIC LUNESTA [Suspect]
     Active Substance: ESZOPICLONE

REACTIONS (4)
  - Insomnia [None]
  - Product substitution issue [None]
  - Fatigue [None]
  - Drug effect decreased [None]
